FAERS Safety Report 9292670 (Version 1)
Quarter: 2013Q2

REPORT INFORMATION
  Report Type: Spontaneous
  Country: IT (occurrence: IT)
  Receive Date: 20130516
  Receipt Date: 20130516
  Transmission Date: 20140414
  Serious: Yes (Other)
  Sender: FDA-Public Use
  Company Number: IT-ELI_LILLY_AND_COMPANY-IT201305004653

PATIENT
  Sex: 0

DRUGS (4)
  1. PRASUGREL HYDROCHLORIDE [Suspect]
     Indication: PERCUTANEOUS CORONARY INTERVENTION
     Dosage: 60 MG, SINGLE
     Route: 048
  2. ASPIRIN [Concomitant]
     Dosage: 500 MG, SINGLE
  3. ASPIRIN [Concomitant]
     Dosage: 100 MG, QD
  4. BIVALIRUDIN [Concomitant]

REACTIONS (1)
  - Thrombosis in device [Unknown]
